FAERS Safety Report 7656517-X (Version None)
Quarter: 2011Q3

REPORT INFORMATION
  Report Type: 
  Country: None (occurrence: None)
  Receive Date: 20110804
  Receipt Date: 20101008
  Transmission Date: 20111222
  Serious: No
  Sender: FDA-Public Use
  Company Number: US-BAUSCH-2010BL005707

PATIENT
  Age: 85 Year
  Sex: Male

DRUGS (3)
  1. OPCON-A [Suspect]
     Indication: SEASONAL ALLERGY
     Route: 047
     Dates: start: 20030101, end: 20101001
  2. TERAZOSIN HCL [Concomitant]
     Indication: PROSTATOMEGALY
  3. FESOTERODINE [Concomitant]
     Indication: URINARY INCONTINENCE

REACTIONS (3)
  - EYE IRRITATION [None]
  - EYE PRURITUS [None]
  - LACRIMATION INCREASED [None]
